FAERS Safety Report 17572230 (Version 1)
Quarter: 2020Q1

REPORT INFORMATION
  Report Type: Spontaneous
  Country: FR (occurrence: FR)
  Receive Date: 20200323
  Receipt Date: 20200323
  Transmission Date: 20200409
  Serious: Yes (Hospitalization)
  Sender: FDA-Public Use
  Company Number: FR-BAYER-2020-044688

PATIENT
  Age: 87 Year
  Sex: Female

DRUGS (17)
  1. DOLIPRANE [Concomitant]
     Active Substance: ACETAMINOPHEN
  2. LANSOYL [Concomitant]
     Active Substance: MINERAL OIL
  3. HALDOL [Concomitant]
     Active Substance: HALOPERIDOL
  4. PROPRANOLOL [Concomitant]
     Active Substance: PROPRANOLOL HYDROCHLORIDE
  5. FUROSEMIDE. [Concomitant]
     Active Substance: FUROSEMIDE
  6. TOVIAZ [Concomitant]
     Active Substance: FESOTERODINE FUMARATE
  7. ATHYMIL [Concomitant]
     Active Substance: MIANSERIN HYDROCHLORIDE
  8. ALEVE [Suspect]
     Active Substance: NAPROXEN SODIUM
     Indication: ARTHRALGIA
     Route: 048
     Dates: start: 202002, end: 20200210
  9. TAHOR [Concomitant]
     Active Substance: ATORVASTATIN CALCIUM
  10. TOUJEO [Concomitant]
     Active Substance: INSULIN GLARGINE
  11. ELIQUIS [Concomitant]
     Active Substance: APIXABAN
  12. NOVORAPID [Concomitant]
     Active Substance: INSULIN ASPART
  13. EUPANTOL [Concomitant]
     Active Substance: PANTOPRAZOLE SODIUM
  14. FORLAX [MACROGOL 4000] [Concomitant]
     Active Substance: POLYETHYLENE GLYCOL 4000
  15. SEBIPROX [Concomitant]
     Active Substance: CICLOPIROX OLAMINE
  16. VOGALENE [Concomitant]
     Active Substance: METOPIMAZINE
  17. UVEDOSE [Concomitant]
     Active Substance: CHOLECALCIFEROL

REACTIONS (2)
  - Hepatitis [Recovering/Resolving]
  - Acute kidney injury [Recovered/Resolved]

NARRATIVE: CASE EVENT DATE: 20200210
